FAERS Safety Report 16136399 (Version 1)
Quarter: 2019Q1

REPORT INFORMATION
  Report Type: Spontaneous
  Country: JP (occurrence: JP)
  Receive Date: 20190329
  Receipt Date: 20190329
  Transmission Date: 20190418
  Serious: Yes (Other)
  Sender: FDA-Public Use
  Company Number: JP-SHIRE-JP201910078

PATIENT

DRUGS (5)
  1. SALAZOSULFAPYRIDINE [Concomitant]
     Active Substance: SULFASALAZINE
     Indication: COLITIS ULCERATIVE
  2. PENTASA [Concomitant]
     Active Substance: MESALAMINE
     Indication: COLITIS ULCERATIVE
  3. PREDNISOLONE. [Concomitant]
     Active Substance: PREDNISOLONE
     Indication: PRODUCT USED FOR UNKNOWN INDICATION
  4. PREDONEMA [Concomitant]
     Active Substance: PREDNISOLONE SODIUM PHOSPHATE
     Indication: COLITIS ULCERATIVE
  5. LIALDA [Suspect]
     Active Substance: MESALAMINE
     Indication: COLITIS ULCERATIVE
     Dosage: UNK
     Route: 048
     Dates: start: 20170728

REACTIONS (2)
  - Haematochezia [Unknown]
  - Abdominal pain [Unknown]

NARRATIVE: CASE EVENT DATE: 20170809
